FAERS Safety Report 24422605 (Version 1)
Quarter: 2024Q4

REPORT INFORMATION
  Report Type: Spontaneous
  Country: DE (occurrence: DE)
  Receive Date: 20241010
  Receipt Date: 20241010
  Transmission Date: 20250115
  Serious: Yes (Death, Life-Threatening, Hospitalization, Other)
  Sender: SANDOZ
  Company Number: DE-STADA-274711

PATIENT
  Age: 11 Year
  Sex: Male

DRUGS (10)
  1. ALEMTUZUMAB [Suspect]
     Active Substance: ALEMTUZUMAB
     Indication: Prophylaxis against graft versus host disease
     Dosage: HE RECEIVED CONDITIONING REGIMEN WITH FLUDARABINE [FLUDARABIN], IV BUSULFAN 3 DAYS, ALEMTUZUMAB
     Route: 065
  2. BUSULFAN [Suspect]
     Active Substance: BUSULFAN
     Indication: Prophylaxis against graft versus host disease
     Dosage: HE RECEIVED CONDITIONING REGIMEN WITH FLUDARABINE [FLUDARABIN], IV BUSULFAN 3 DAYS, ALEMTUZUMAB
     Route: 042
  3. CYCLOSPORINE [Suspect]
     Active Substance: CYCLOSPORINE
     Indication: Prophylaxis against graft versus host disease
     Dosage: PROPHYLAXIS WITH CICLOSPORIN, MYCOPHENOLATE MOFETIL AND PREDNISONE FOR PREVENTION OF GVHD
     Route: 065
  4. FLUDARABINE [Suspect]
     Active Substance: FLUDARABINE PHOSPHATE
     Indication: Prophylaxis against graft versus host disease
     Dosage: HE RECEIVED CONDITIONING REGIMEN WITH FLUDARABINE [FLUDARABIN], IV BUSULFAN 3 DAYS, ALEMTUZUMAB
     Route: 065
  5. IMATINIB [Suspect]
     Active Substance: IMATINIB
     Indication: Graft versus host disease
     Dosage: UNK
     Route: 065
  6. METHOTREXATE [Suspect]
     Active Substance: METHOTREXATE
     Indication: Graft versus host disease
     Dosage: PROPHYLAXIS WITH CICLOSPORIN [CYCLOSPORIN A], METHOTREXATE FOR PREVENTION OF GVHD.HE RECEIVED GVHD T
     Route: 065
  7. MYCOPHENOLATE MOFETIL [Suspect]
     Active Substance: MYCOPHENOLATE MOFETIL
     Indication: Prophylaxis against graft versus host disease
     Dosage: UNK
     Route: 065
  8. PREDNISOLONE [Suspect]
     Active Substance: PREDNISOLONE
     Indication: Graft versus host disease
     Dosage: HE RECEIVED GVHD TREATMENT WITH CICLOSPORIN, PREDNISOLONE, METHYLPREDNISOLONE, TACROLIMUS, INFLIXIMA
     Route: 065
  9. PREDNISONE [Suspect]
     Active Substance: PREDNISONE
     Indication: Prophylaxis against graft versus host disease
     Dosage: UNK
     Route: 065
  10. BUDESONIDE [Concomitant]
     Active Substance: BUDESONIDE
     Indication: Graft versus host disease
     Route: 065

REACTIONS (9)
  - Transplant failure [Fatal]
  - BK virus infection [Fatal]
  - Bronchopulmonary aspergillosis [Fatal]
  - Staphylococcal infection [Fatal]
  - Adenovirus infection [Fatal]
  - Pulmonary haemorrhage [Fatal]
  - Candida infection [Fatal]
  - Aspergillus infection [Fatal]
  - Lactobacillus infection [Fatal]
